FAERS Safety Report 6105835-5 (Version None)
Quarter: 2009Q1

REPORT INFORMATION
  Report Type: 
  Country: None (occurrence: None)
  Receive Date: 20090306
  Receipt Date: 20090304
  Transmission Date: 20090719
  Serious: Yes (Hospitalization)
  Sender: FDA-Public Use
  Company Number: CH-PFIZER INC-2009177929

PATIENT

DRUGS (8)
  1. CELEBREX [Suspect]
     Route: 048
     Dates: end: 20081212
  2. SINTROM [Suspect]
     Dosage: 1 MG, AS NEEDED
     Route: 048
     Dates: end: 20081212
  3. ASPIRIN [Suspect]
     Route: 048
     Dates: end: 20081212
  4. RENITEN [Concomitant]
     Dosage: 20 MG, UNK
  5. TOREM [Concomitant]
     Dosage: 10 MG, UNK
  6. NITRODERM [Concomitant]
     Dosage: UNK
  7. XENALON [Concomitant]
  8. LANTUS [Concomitant]
     Dosage: UNK

REACTIONS (4)
  - ANAEMIA [None]
  - CHEST PAIN [None]
  - GASTRITIS EROSIVE [None]
  - PROTHROMBIN TIME PROLONGED [None]
